FAERS Safety Report 5003274-1 (Version None)
Quarter: 2006Q2

REPORT INFORMATION
  Report Type: 
  Country: None (occurrence: None)
  Receive Date: 20060512
  Receipt Date: 20060501
  Transmission Date: 20061013
  Serious: Yes (Hospitalization)
  Sender: FDA-Public Use
  Company Number: 224610

PATIENT
  Sex: Male

DRUGS (1)
  1. RAPTIVA [Suspect]

REACTIONS (2)
  - BACK PAIN [None]
  - JOINT EFFUSION [None]
